FAERS Safety Report 4885153-3 (Version None)
Quarter: 2005Q4

REPORT INFORMATION
  Report Type: 
  Country: None (occurrence: None)
  Receive Date: 20051201
  Receipt Date: 20050914
  Transmission Date: 20060501
  Serious: No
  Sender: FDA-Public Use
  Company Number: 2005PV002159

PATIENT
  Age: 74 Year
  Sex: Female

DRUGS (5)
  1. BYETTA [Suspect]
     Indication: DIABETES MELLITUS NON-INSULIN-DEPENDENT
     Dosage: 5 MCG; BID; SC
     Route: 058
     Dates: start: 20050909
  2. METFORMIN [Concomitant]
  3. LIPITOR [Concomitant]
  4. PROCHLORPERAZINE [Concomitant]
  5. BLOOD PRESSURE MEDS [Concomitant]

REACTIONS (4)
  - ERUCTATION [None]
  - NAUSEA [None]
  - RETCHING [None]
  - VOMITING [None]
